FAERS Safety Report 11707125 (Version 1)
Quarter: 2015Q4

REPORT INFORMATION
  Report Type: Spontaneous
  Country: US (occurrence: US)
  Receive Date: 20151104
  Receipt Date: 20151104
  Transmission Date: 20160304
  Serious: No
  Sender: FDA-Public Use
  Company Number: US-ELI_LILLY_AND_COMPANY-US201102004418

PATIENT
  Sex: Male

DRUGS (17)
  1. MULTIVITAMIN [Concomitant]
     Active Substance: VITAMINS
     Dosage: UNK, DAILY (1/D)
  2. ASPIRIN. [Concomitant]
     Active Substance: ASPIRIN
     Dosage: 81 MG, DAILY (1/D)
  3. VITAMIN E /001105/ [Concomitant]
     Dosage: 400 IU, DAILY (1/D)
  4. VITAMIN D3 [Concomitant]
     Active Substance: CHOLECALCIFEROL
     Dosage: 4000 IU, 2/D
  5. FORTEO [Suspect]
     Active Substance: TERIPARATIDE
     Indication: OSTEOPOROSIS
     Dosage: 20 UG, DAILY (1/D)
     Route: 065
     Dates: start: 201004
  6. LASIX [Concomitant]
     Active Substance: FUROSEMIDE
     Dosage: 40 MG, DAILY (1/D)
  7. YEAST [Concomitant]
     Active Substance: YEAST
     Indication: BLOOD CHOLESTEROL INCREASED
     Dosage: 600 MG, 2/D
  8. MAGNESIUM [Concomitant]
     Active Substance: MAGNESIUM
     Dosage: 800 MG, 2/D
  9. GLUCONATE SODIUM [Concomitant]
     Dosage: 50 MG, DAILY (1/D)
  10. COENZYME Q10 [Concomitant]
     Active Substance: UBIDECARENONE
     Dosage: UNK, 2/D
  11. VITAMIN B12 [Concomitant]
     Active Substance: CYANOCOBALAMIN
     Dosage: 1 MG, DAILY (1/D)
  12. MOTEXAFIN [Concomitant]
     Indication: MACULAR DEGENERATION
     Dosage: UNK, DAILY (1/D)
  13. FOSAMAX [Concomitant]
     Active Substance: ALENDRONATE SODIUM
     Dosage: UNK, WEEKLY (1/W)
  14. VITAMIN C [Concomitant]
     Active Substance: ASCORBIC ACID
     Dosage: 1000 MG, DAILY (1/D)
  15. CALCIUM CITRATE [Concomitant]
     Active Substance: CALCIUM CITRATE
     Dosage: 630 MG, 2/D
  16. PROTONIX [Concomitant]
     Active Substance: PANTOPRAZOLE SODIUM
     Dosage: 40 MG, DAILY (1/D)
  17. ZINC [Concomitant]
     Active Substance: ZINC\ZINC CHLORIDE

REACTIONS (1)
  - Full blood count decreased [Unknown]
